FAERS Safety Report 10502500 (Version 3)
Quarter: 2014Q4

REPORT INFORMATION
  Report Type: Spontaneous
  Country: BR (occurrence: BR)
  Receive Date: 20141007
  Receipt Date: 20141103
  Transmission Date: 20150528
  Serious: No
  Sender: FDA-Public Use
  Company Number: BR-PFIZER INC-2014267291

PATIENT
  Age: 89 Year
  Sex: Female
  Weight: 81 kg

DRUGS (3)
  1. FELDENE [Suspect]
     Active Substance: PIROXICAM
     Dosage: TOPIC, 1X/DAY
     Route: 061
  2. DAFLON [Concomitant]
     Active Substance: DIOSMIN\HESPERIDIN
     Indication: VARICOSE VEIN
     Dosage: UNK, 1X/DAY
     Dates: start: 201404
  3. FELDENE [Suspect]
     Active Substance: PIROXICAM
     Indication: PAIN IN EXTREMITY
     Dosage: TOPIC, 3X/DAY
     Route: 061
     Dates: start: 20140923

REACTIONS (1)
  - Feeling cold [Unknown]
